FAERS Safety Report 8658972 (Version 3)
Quarter: 2013Q1

REPORT INFORMATION
  Report Type: Report from Study
  Country: BR (occurrence: BR)
  Receive Date: 20120710
  Receipt Date: 20130211
  Transmission Date: 20140127
  Serious: Yes (Other)
  Sender: FDA-Public Use
  Company Number: BR-ROCHE-1084200

PATIENT
  Sex: Female
  Weight: 67 kg

DRUGS (9)
  1. MABTHERA [Suspect]
     Indication: RHEUMATOID ARTHRITIS
     Route: 042
     Dates: start: 20110101, end: 20120111
  2. MABTHERA [Suspect]
     Indication: NEUROPSYCHIATRIC LUPUS
     Route: 042
     Dates: start: 2008, end: 20120111
  3. MABTHERA [Suspect]
     Route: 042
     Dates: start: 20121010, end: 20121026
  4. PURAN T4 [Concomitant]
  5. HIDANTAL [Concomitant]
  6. HIDANTAL [Concomitant]
     Indication: CONVULSION
     Route: 065
  7. FRISIUM [Concomitant]
     Route: 065
  8. VITAMIN B12 [Concomitant]
     Route: 065
  9. T4 [Concomitant]
     Indication: HYPOTHYROIDISM
     Route: 065

REACTIONS (18)
  - Convulsion [Not Recovered/Not Resolved]
  - Headache [Not Recovered/Not Resolved]
  - Throat tightness [Recovered/Resolved]
  - Laryngeal oedema [Unknown]
  - Vasculitis [Unknown]
  - Vertebral column mass [Not Recovered/Not Resolved]
  - Nausea [Not Recovered/Not Resolved]
  - Malaise [Recovered/Resolved]
  - Influenza [Not Recovered/Not Resolved]
  - Sinusitis [Not Recovered/Not Resolved]
  - Tonsillitis [Not Recovered/Not Resolved]
  - Arthralgia [Not Recovered/Not Resolved]
  - Joint swelling [Unknown]
  - Rash [Unknown]
  - Rash pruritic [Unknown]
  - Feeling of despair [Unknown]
  - Hypoaesthesia [Not Recovered/Not Resolved]
  - Vision blurred [Not Recovered/Not Resolved]
